FAERS Safety Report 5532830-7 (Version None)
Quarter: 2007Q4

REPORT INFORMATION
  Report Type: 
  Country: None (occurrence: None)
  Receive Date: 20071130
  Receipt Date: 20071130
  Transmission Date: 20080405
  Serious: Yes (Other)
  Sender: FDA-Public Use
  Company Number: None

PATIENT
  Age: 80 Year
  Sex: Male
  Weight: 77.1115 kg

DRUGS (1)
  1. PRAVASTATIN [Suspect]
     Indication: LOW DENSITY LIPOPROTEIN
     Dosage: 1/DAY DAILY PO; DAILY
     Route: 048
     Dates: start: 20071016, end: 20071125

REACTIONS (2)
  - PRURITUS [None]
  - URTICARIA [None]
